FAERS Safety Report 5814920-4 (Version None)
Quarter: 2008Q3

REPORT INFORMATION
  Report Type: 
  Country: None (occurrence: None)
  Receive Date: 20080718
  Receipt Date: 20080707
  Transmission Date: 20090109
  Serious: Yes (Other)
  Sender: FDA-Public Use
  Company Number: PHBS2008JP05145

PATIENT
  Age: 50 Year
  Sex: Female

DRUGS (4)
  1. CYCLOSPORINE [Suspect]
     Indication: DERMATOMYOSITIS
  2. CYCLOSPORINE [Suspect]
     Indication: INTERSTITIAL LUNG DISEASE
  3. METHYLPREDNISOLONE [Concomitant]
  4. GANCICLOVIR [Suspect]
     Indication: CYTOMEGALOVIRUS INFECTION

REACTIONS (6)
  - COMPRESSION FRACTURE [None]
  - CYTOMEGALOVIRUS INFECTION [None]
  - HERPES ZOSTER [None]
  - HYPERTENSION [None]
  - INTERSTITIAL LUNG DISEASE [None]
  - OSTEONECROSIS [None]
